APPROVED DRUG PRODUCT: ROSUVASTATIN CALCIUM
Active Ingredient: ROSUVASTATIN CALCIUM
Strength: EQ 40MG BASE
Dosage Form/Route: TABLET;ORAL
Application: A207653 | Product #004
Applicant: INVENTIA HEALTHCARE LTD
Approved: Feb 5, 2021 | RLD: No | RS: No | Type: DISCN